FAERS Safety Report 4951586-X (Version None)
Quarter: 2006Q1

REPORT INFORMATION
  Report Type: 
  Country: None (occurrence: None)
  Receive Date: 20060323
  Receipt Date: 20060313
  Transmission Date: 20060701
  Serious: Yes (Hospitalization)
  Sender: FDA-Public Use
  Company Number: PHHO2006AR04315

PATIENT
  Sex: Female

DRUGS (1)
  1. ZELMAC / HTF 919A [Suspect]
     Indication: IRRITABLE BOWEL SYNDROME
     Dosage: ONE TABLET BID
     Route: 048
     Dates: start: 20050101

REACTIONS (6)
  - HAEMORRHOID OPERATION [None]
  - HAEMORRHOIDS [None]
  - POST PROCEDURAL HAEMORRHAGE [None]
  - RECTAL HAEMORRHAGE [None]
  - SURGERY [None]
  - SUTURE INSERTION [None]
